FAERS Safety Report 4565588-9 (Version None)
Quarter: 2005Q1

REPORT INFORMATION
  Report Type: 
  Country: None (occurrence: None)
  Receive Date: 20050126
  Receipt Date: 20050110
  Transmission Date: 20050727
  Serious: Yes (Hospitalization)
  Sender: FDA-Public Use
  Company Number: USA050187910

PATIENT
  Age: 55 Year
  Sex: Female

DRUGS (7)
  1. FORTEO [Suspect]
     Indication: OSTEOPOROSIS
     Dates: start: 20031001
  2. VICODIN [Concomitant]
  3. ULTRAM [Concomitant]
  4. SYNTHROID [Concomitant]
  5. ZOLOFT (SER4TRALINE HYDROCHLORIDE) [Concomitant]
  6. CLONAZEPAM [Concomitant]
  7. TRAZADONE (TRAZADONE) [Concomitant]

REACTIONS (7)
  - DEHYDRATION [None]
  - DIARRHOEA [None]
  - INFLUENZA [None]
  - NAUSEA [None]
  - PHARMACEUTICAL PRODUCT COMPLAINT [None]
  - PHARYNGOLARYNGEAL PAIN [None]
  - VOMITING [None]
